FAERS Safety Report 5824979-6 (Version None)
Quarter: 2008Q3

REPORT INFORMATION
  Report Type: 
  Country: None (occurrence: None)
  Receive Date: 20080728
  Receipt Date: 20080718
  Transmission Date: 20090109
  Serious: Yes (Other)
  Sender: FDA-Public Use
  Company Number: CN-PFIZER INC-2008060218

PATIENT
  Age: 50 Year
  Sex: Male

DRUGS (2)
  1. CARDURA [Suspect]
     Indication: BENIGN PROSTATIC HYPERPLASIA
     Route: 048
     Dates: start: 20080708, end: 20080710
  2. ALL OTHER THERAPEUTIC PRODUCTS [Suspect]
     Indication: BENIGN PROSTATIC HYPERPLASIA
     Route: 048

REACTIONS (4)
  - ATRIOVENTRICULAR BLOCK [None]
  - DIZZINESS [None]
  - SINUS TACHYCARDIA [None]
  - SYNCOPE [None]
